FAERS Safety Report 24604786 (Version 1)
Quarter: 2024Q4

REPORT INFORMATION
  Report Type: Spontaneous
  Country: US (occurrence: US)
  Receive Date: 20241111
  Receipt Date: 20241111
  Transmission Date: 20250115
  Serious: No
  Sender: MILLICENT HOLDINGS
  Company Number: US-Millicent Holdings Ltd.-MILL20241233

PATIENT
  Sex: Female

DRUGS (1)
  1. FEMRING [Suspect]
     Active Substance: ESTRADIOL ACETATE
     Indication: Product used for unknown indication
     Dosage: 0.10 MG
     Route: 067

REACTIONS (4)
  - Therapeutic product effect decreased [Unknown]
  - Hot flush [Unknown]
  - Unevaluable event [Unknown]
  - Inappropriate schedule of product administration [None]
